FAERS Safety Report 14902354 (Version 1)
Quarter: 2018Q2

REPORT INFORMATION
  Report Type: Spontaneous
  Country: NL (occurrence: NL)
  Receive Date: 20180516
  Receipt Date: 20180516
  Transmission Date: 20180711
  Serious: Yes (Other)
  Sender: FDA-Public Use
  Company Number: NL-MYLANLABS-2018M1031853

PATIENT
  Age: 51 Year
  Sex: Female
  Weight: 70 kg

DRUGS (6)
  1. SPIRONOLACTONE. [Suspect]
     Active Substance: SPIRONOLACTONE
     Indication: HYPERTENSION
     Dosage: 25MG
     Dates: start: 20171103, end: 20171122
  2. HCT [Concomitant]
     Active Substance: HYDROCHLOROTHIAZIDE
     Indication: PRODUCT USED FOR UNKNOWN INDICATION
     Dosage: 12.5 MG, QD
  3. AMLODIPINE [Concomitant]
     Active Substance: AMLODIPINE BESYLATE
     Indication: PRODUCT USED FOR UNKNOWN INDICATION
  4. VALSARTAN. [Concomitant]
     Active Substance: VALSARTAN
     Dosage: 180 MG, UNK
  5. VALSARTAN. [Concomitant]
     Active Substance: VALSARTAN
     Indication: PRODUCT USED FOR UNKNOWN INDICATION
     Dosage: 80 MG, QD
  6. SIMVASTATINE [Concomitant]
     Active Substance: SIMVASTATIN
     Indication: PRODUCT USED FOR UNKNOWN INDICATION
     Dosage: 20 MG, QD

REACTIONS (5)
  - Vaginal haemorrhage [Unknown]
  - Dizziness [Unknown]
  - Breast pain [Unknown]
  - Blood creatinine increased [Unknown]
  - Renal impairment [Unknown]

NARRATIVE: CASE EVENT DATE: 20171103
